FAERS Safety Report 8932326 (Version 2)
Quarter: 2012Q4

REPORT INFORMATION
  Report Type: 
  Country: NL (occurrence: NL)
  Receive Date: 20121128
  Receipt Date: 20121231
  Transmission Date: 20130627
  Serious: Yes (Other)
  Sender: FDA-Public Use
  Company Number: NL-AMGEN-NLDSP2012076189

PATIENT
  Age: 63 Year
  Sex: Male

DRUGS (10)
  1. ENBREL [Suspect]
     Indication: RHEUMATOID ARTHRITIS
     Dosage: 50 mg, weekly
     Dates: start: 2009
  2. LEVOTHYROXINE [Concomitant]
     Dosage: UNK
  3. INSULIN [Concomitant]
     Dosage: UNK
  4. CO-DIOVANE [Concomitant]
     Dosage: UNK
  5. PANTOZOL [Concomitant]
     Dosage: UNK
  6. ATENOLOL [Concomitant]
     Dosage: UNK
  7. METFORMIN [Concomitant]
     Dosage: UNK
  8. ZOCOR [Concomitant]
     Dosage: UNK
  9. DIAMICRON [Concomitant]
     Dosage: UNK
  10. PERSANTIN [Concomitant]
     Dosage: UNK

REACTIONS (2)
  - Rheumatoid nodule [Not Recovered/Not Resolved]
  - Sepsis [Not Recovered/Not Resolved]
